FAERS Safety Report 7354671-0 (Version None)
Quarter: 2011Q1

REPORT INFORMATION
  Report Type: 
  Country: None (occurrence: None)
  Receive Date: 20110316
  Receipt Date: 20110314
  Transmission Date: 20110831
  Serious: No
  Sender: FDA-Public Use
  Company Number: US-PFIZER INC-2011055733

PATIENT
  Sex: Male
  Weight: 74.83 kg

DRUGS (4)
  1. CALCIUM [Concomitant]
     Dosage: UNK
  2. ASCORBIC ACID [Concomitant]
     Dosage: UNK
  3. ADVIL LIQUI-GELS [Suspect]
     Indication: PAIN
     Dosage: 200 MG, UNK
     Route: 048
     Dates: start: 20110201, end: 20110301
  4. CRANBERRY [Concomitant]
     Dosage: UNK

REACTIONS (3)
  - DYSPEPSIA [None]
  - RENAL DISORDER [None]
  - PAIN IN EXTREMITY [None]
